FAERS Safety Report 9982941 (Version 1)
Quarter: 2014Q1

REPORT INFORMATION
  Report Type: Report from Study
  Country: US (occurrence: US)
  Receive Date: 20140307
  Receipt Date: 20140307
  Transmission Date: 20141002
  Serious: No
  Sender: FDA-Public Use
  Company Number: US-ABBVIE-13P-163-1176242-00

PATIENT
  Age: 67 Year
  Sex: Male
  Weight: 108.96 kg

DRUGS (11)
  1. HUMIRA [Suspect]
     Indication: PSORIASIS
     Dates: start: 201311
  2. ATENOLOL [Concomitant]
     Indication: HYPERTENSION
  3. GLYBURIDE [Concomitant]
     Indication: DIABETES MELLITUS
  4. DIGOXIN [Concomitant]
     Indication: HEART RATE INCREASED
  5. HYDROCHLOROTHIAZIDE [Concomitant]
     Indication: HYPERTENSION
  6. LISINOPRIL [Concomitant]
     Indication: HYPERTENSION
  7. AMLODIPINE [Concomitant]
     Indication: HYPERTENSION
  8. METFORMIN [Concomitant]
     Indication: DIABETES MELLITUS
  9. WARFARIN [Concomitant]
     Indication: ATRIAL FIBRILLATION
  10. ZOLPIDEM [Concomitant]
     Indication: INSOMNIA
  11. GABAPENTIN [Concomitant]
     Indication: NEUROPATHY PERIPHERAL

REACTIONS (3)
  - Arthralgia [Not Recovered/Not Resolved]
  - Infection [Unknown]
  - Drug dose omission [Not Recovered/Not Resolved]
